FAERS Safety Report 23162839 (Version 2)
Quarter: 2024Q1

REPORT INFORMATION
  Report Type: Report from Study
  Country: ES (occurrence: ES)
  Receive Date: 20231109
  Receipt Date: 20240105
  Transmission Date: 20240410
  Serious: Yes (Hospitalization, Other)
  Sender: FDA-Public Use
  Company Number: ES-EMA-DD-20231017-7180171-162504

PATIENT
  Age: 73 Year
  Weight: 73 kg

DRUGS (20)
  1. PACLITAXEL [Suspect]
     Active Substance: PACLITAXEL
     Indication: Non-small cell lung cancer metastatic
     Dosage: 368 MG, DURATION: 1 DAYS
     Route: 042
     Dates: start: 20230727, end: 20230727
  2. PACLITAXEL [Suspect]
     Active Substance: PACLITAXEL
     Indication: Non-small cell lung cancer metastatic
     Dosage: 368 MG, DURATION: 1 DAYS
     Route: 042
     Dates: start: 20230817, end: 20230817
  3. ZIMBERELIMAB [Suspect]
     Active Substance: ZIMBERELIMAB
     Indication: Non-small cell lung cancer metastatic
     Dosage: 360 MG, DUATION: 1 DAYS
     Route: 042
     Dates: start: 20230817, end: 20230817
  4. ZIMBERELIMAB [Suspect]
     Active Substance: ZIMBERELIMAB
     Indication: Non-small cell lung cancer metastatic
     Dosage: 360 MG, DURATION: 1 DAYS
     Route: 042
     Dates: start: 20230727, end: 20230727
  5. ACETAMINOPHEN [Concomitant]
     Active Substance: ACETAMINOPHEN
     Indication: Product used for unknown indication
     Dosage: 1 G, TID
     Route: 065
     Dates: start: 20230824
  6. ALPRAZOLAM [Suspect]
     Active Substance: ALPRAZOLAM
     Indication: Product used for unknown indication
     Route: 065
  7. ESOMEPRAZOLE [Suspect]
     Active Substance: ESOMEPRAZOLE
     Indication: Product used for unknown indication
     Dosage: 40 MG, QD
     Route: 065
  8. METAMIZOLE MAGNESIUM [Suspect]
     Active Substance: METAMIZOLE MAGNESIUM
     Indication: Product used for unknown indication
     Dosage: 2 G, Q8H
     Route: 065
  9. FUROSEMIDE [Suspect]
     Active Substance: FUROSEMIDE
     Indication: Product used for unknown indication
     Dosage: 40 MG, QD
     Route: 065
     Dates: start: 20230822
  10. ENOXAPARIN SODIUM [Suspect]
     Active Substance: ENOXAPARIN SODIUM
     Indication: Product used for unknown indication
     Dosage: 100 MG, Q6M
     Route: 058
     Dates: start: 20230822
  11. CARBOPLATIN [Suspect]
     Active Substance: CARBOPLATIN
     Indication: Non-small cell lung cancer metastatic
     Dosage: 718.8 MG, DURATION: 1 DAYS
     Route: 042
     Dates: start: 20230727, end: 20230727
  12. CARBOPLATIN [Suspect]
     Active Substance: CARBOPLATIN
     Indication: Non-small cell lung cancer metastatic
     Dosage: 719 MG, DURATION: 1 DAYS
     Route: 042
     Dates: start: 20230817, end: 20230817
  13. METAMIZOL [Concomitant]
     Active Substance: METAMIZOLE SODIUM
     Indication: Product used for unknown indication
     Dosage: UNK
     Dates: start: 20230810
  14. ALPRAZOLAM [Suspect]
     Active Substance: ALPRAZOLAM
     Indication: Product used for unknown indication
     Dosage: 0.25 MG, TID
     Route: 065
     Dates: start: 20230822
  15. DOMVANALIMAB [Suspect]
     Active Substance: DOMVANALIMAB
     Indication: Non-small cell lung cancer metastatic
     Dosage: 1200 MG, DURATION: 1 DAYS
     Route: 042
     Dates: start: 20230817, end: 20230817
  16. DOMVANALIMAB [Suspect]
     Active Substance: DOMVANALIMAB
     Indication: Non-small cell lung cancer metastatic
     Dosage: 1200 MG, DURATION: 1 DAYS
     Route: 042
     Dates: start: 20230727, end: 20230727
  17. VALIUM [Concomitant]
     Active Substance: DIAZEPAM
     Indication: Product used for unknown indication
     Dosage: UNK
     Dates: start: 20230822
  18. TRAMADOL [Concomitant]
     Active Substance: TRAMADOL\TRAMADOL HYDROCHLORIDE
     Indication: Product used for unknown indication
     Dosage: UNK
     Dates: start: 20230810, end: 20230824
  19. IBUPROFEN [Concomitant]
     Active Substance: IBUPROFEN
     Indication: Product used for unknown indication
     Dosage: UNK
     Dates: start: 20230501, end: 20230810
  20. ONDANSETRON [Concomitant]
     Active Substance: ONDANSETRON
     Indication: Product used for unknown indication
     Dosage: UNK
     Dates: start: 20230820

REACTIONS (4)
  - Fatigue [Recovered/Resolved]
  - Vomiting [Recovered/Resolved]
  - Dysphagia [Recovered/Resolved]
  - Nausea [Recovering/Resolving]

NARRATIVE: CASE EVENT DATE: 20230820
